FAERS Safety Report 20223691 (Version 1)
Quarter: 2021Q4

REPORT INFORMATION
  Report Type: Spontaneous
  Country: US (occurrence: None)
  Receive Date: 20211223
  Receipt Date: 20211223
  Transmission Date: 20220303
  Serious: Yes (Hospitalization)
  Sender: FDA-Public Use
  Company Number: None

PATIENT
  Sex: Male

DRUGS (1)
  1. SIMPONI [Suspect]
     Active Substance: GOLIMUMAB
     Indication: Psoriatic arthropathy
     Dosage: OTHER QUANTITY : 50MG/0.5ML;?FREQUENCY : MONTHLY;?
     Route: 058

REACTIONS (2)
  - Product dose omission in error [None]
  - Pleural effusion [None]
